FAERS Safety Report 12931882 (Version 8)
Quarter: 2020Q3

REPORT INFORMATION
  Report Type: Report from Study
  Country: CZ (occurrence: CZ)
  Receive Date: 20161111
  Receipt Date: 20180226
  Transmission Date: 20201105
  Serious: Yes (Death, Life-Threatening, Hospitalization)
  Sender: FDA-Public Use
  Company Number: CZ-ROCHE-1849529

PATIENT
  Age: 72 Year
  Sex: Female
  Weight: 42 kg

DRUGS (8)
  1. BENDAMUSTINE [Suspect]
     Active Substance: BENDAMUSTINE
     Indication: DIFFUSE LARGE B-CELL LYMPHOMA
     Dosage: ON DAYS 2 AND 3 OF CYCLE 1, THEN ON DAYS 1 AND 2 OF EACH SUBSEQUENT CYCLE FOR UP TO 6 CYCLES (EACH C
     Route: 042
     Dates: start: 20160122
  2. MONOPOST [Concomitant]
     Dosage: INDICATION: REDUCTION OF ELEVATED INTRAOCULAR PRESSURE IN PATIENTS WITH OPEN ANGLE GLAUCOMA.
     Route: 065
     Dates: start: 2000
  3. COTRIMOXAZOLE [Concomitant]
     Active Substance: SULFAMETHOXAZOLE\TRIMETHOPRIM
     Indication: INFECTION PROPHYLAXIS
     Route: 065
     Dates: start: 20160122, end: 20161004
  4. RITUXIMAB. [Suspect]
     Active Substance: RITUXIMAB
     Indication: DIFFUSE LARGE B-CELL LYMPHOMA
     Dosage: ON DAY 1 OF EACH CYCLE FOR UP TO 6 CYCLES (EACH CYCLE WAS 21 DAYS)?LAST DOSE OF RITUXIMAB WAS 530 MG
     Route: 042
     Dates: start: 20160121
  5. POLATUZUMAB VEDOTIN. [Suspect]
     Active Substance: POLATUZUMAB VEDOTIN
     Indication: DIFFUSE LARGE B-CELL LYMPHOMA
     Dosage: ON DAY 2 OF CYCLE 1, THEN ON DAY 1 OF EACH SUBSEQUENT CYCLE FOR UP TO 6 CYCLES (EACH CYCLE WAS 21 DA
     Route: 042
     Dates: start: 20160122
  6. VALACICLOVIR [Concomitant]
     Active Substance: VALACYCLOVIR HYDROCHLORIDE
     Indication: INFECTION PROPHYLAXIS
     Route: 065
     Dates: start: 20160121, end: 20161004
  7. SIMBRINZA [Concomitant]
     Active Substance: BRIMONIDINE TARTRATE\BRINZOLAMIDE
     Indication: GLAUCOMA
     Route: 065
     Dates: start: 2000
  8. GLUCOPHAGE [Concomitant]
     Active Substance: METFORMIN HYDROCHLORIDE
     Indication: TYPE 2 DIABETES MELLITUS
     Route: 065
     Dates: start: 20160126

REACTIONS (2)
  - Meningoencephalitis herpetic [Fatal]
  - Herpes virus infection [Recovered/Resolved with Sequelae]

NARRATIVE: CASE EVENT DATE: 20161024
